FAERS Safety Report 7449847-8 (Version None)
Quarter: 2011Q2

REPORT INFORMATION
  Report Type: 
  Country: None (occurrence: None)
  Receive Date: 20110502
  Receipt Date: 20110419
  Transmission Date: 20111010
  Serious: Yes (Other)
  Sender: FDA-Public Use
  Company Number: GB-BAYER-2011-025386

PATIENT
  Age: 41 Year
  Sex: Female

DRUGS (2)
  1. MIRENA [Suspect]
     Indication: MENORRHAGIA
  2. MIRENA [Suspect]
     Indication: PREMENSTRUAL SYNDROME
     Dosage: 20 ?G, CONT
     Route: 015

REACTIONS (6)
  - DEPRESSED MOOD [None]
  - LETHARGY [None]
  - SLEEP DISORDER [None]
  - ILLUSION [None]
  - PREMENSTRUAL SYNDROME [None]
  - TEARFULNESS [None]
